FAERS Safety Report 8180165-9 (Version None)
Quarter: 2012Q1

REPORT INFORMATION
  Report Type: 
  Country: None (occurrence: None)
  Receive Date: 20120229
  Receipt Date: 20120203
  Transmission Date: 20120608
  Serious: Yes (Hospitalization, Other)
  Sender: FDA-Public Use
  Company Number: 2012PROUSA00975

PATIENT
  Age: 74 Year
  Sex: Male
  Weight: 81.7 kg

DRUGS (9)
  1. METFORMIN HCL [Concomitant]
  2. METOPROLOL TARTRATE [Concomitant]
  3. HYDROCHLOROTHIAZIDE [Concomitant]
  4. HMG COA REDUCTASE INHIBITORS [Concomitant]
  5. FENOFIBRATE [Concomitant]
  6. PROVENGE [Suspect]
     Indication: PROSTATE CANCER METASTATIC
     Dosage: 250 ML, SINGLE, INTRAVENOUS
     Route: 042
     Dates: start: 20111222, end: 20111222
  7. BENADRYL [Suspect]
  8. ENALAPRIL MALEATE [Concomitant]
  9. ASPIRIN [Concomitant]

REACTIONS (12)
  - SYNCOPE [None]
  - DIZZINESS [None]
  - COAGULOPATHY [None]
  - DYSKINESIA [None]
  - NAUSEA [None]
  - HYPOPHAGIA [None]
  - HYPOTENSION [None]
  - DECREASED APPETITE [None]
  - LOSS OF CONSCIOUSNESS [None]
  - PRESYNCOPE [None]
  - DRUG TOLERANCE DECREASED [None]
  - PARAESTHESIA [None]
